FAERS Safety Report 10133159 (Version 2)
Quarter: 2015Q1

REPORT INFORMATION
  Report Type: Other
  Country: US (occurrence: US)
  Receive Date: 20140428
  Receipt Date: 20150223
  Transmission Date: 20150720
  Serious: Yes (Hospitalization, Other)
  Sender: FDA-Public Use
  Company Number: US-GSKPPD-2014GSK035058

PATIENT
  Age: 49 Year
  Sex: Female

DRUGS (5)
  1. PLAVIX [Concomitant]
     Active Substance: CLOPIDOGREL BISULFATE
  2. AVANDAMET [Suspect]
     Active Substance: METFORMIN HYDROCHLORIDE\ROSIGLITAZONE MALEATE
     Indication: DIABETES MELLITUS
     Dosage: DATES OF AVANDAMET USE COULD NOT BE CONFIRMED IN RECORDS REVIEWED
  3. LOPRESSOR [Concomitant]
     Active Substance: METOPROLOL TARTRATE
  4. ALTACE [Concomitant]
     Active Substance: RAMIPRIL
  5. AVANDIA [Suspect]
     Active Substance: ROSIGLITAZONE MALEATE
     Indication: DIABETES MELLITUS
     Dosage: DATES OF AVANDIA USE COULD NOT BE CONFIRMED IN RECORDS REVIEWED
     Route: 048
     Dates: start: 20050827

REACTIONS (1)
  - Myocardial infarction [Recovered/Resolved]

NARRATIVE: CASE EVENT DATE: 20050826
